FAERS Safety Report 7475222-6 (Version None)
Quarter: 2011Q2

REPORT INFORMATION
  Report Type: 
  Country: None (occurrence: None)
  Receive Date: 20110505
  Receipt Date: 20110216
  Transmission Date: 20111010
  Serious: Yes (Life-Threatening, Hospitalization, Other)
  Sender: FDA-Public Use
  Company Number: GB-ACCORD-008153

PATIENT
  Age: 61 Year
  Sex: Female

DRUGS (7)
  1. ATORVASTATIN [Suspect]
  2. LERCANIDIPINE [Suspect]
  3. ATROVENT [Suspect]
  4. BENDROFLUMETHIAZIDE (BENDROFLUMETHIAZIDE) [Suspect]
  5. ANASTROZOLE [Suspect]
     Indication: BREAST CANCER
     Dosage: 1/00 MG, ORAL
     Route: 048
     Dates: end: 20100101
  6. RAMIPRIL [Suspect]
  7. EXEMESTANE [Suspect]
     Indication: BREAST CANCER
     Dosage: 25.00 MG
     Dates: start: 20100101

REACTIONS (1)
  - HYPONATRAEMIA [None]
